FAERS Safety Report 5175050-0 (Version None)
Quarter: 2006Q4

REPORT INFORMATION
  Report Type: 
  Country: None (occurrence: None)
  Receive Date: 20061206
  Receipt Date: 20061121
  Transmission Date: 20070319
  Serious: Yes (Life-Threatening, Hospitalization)
  Sender: FDA-Public Use
  Company Number: 232435

PATIENT
  Sex: Female
  Weight: 68.8 kg

DRUGS (2)
  1. HERCEPTIN [Suspect]
     Indication: DRUG USE FOR UNKNOWN INDICATION
     Dosage: 70 MG, INTRAVENOUS
     Route: 042
     Dates: start: 20061030, end: 20061030
  2. NAVELBINE [Suspect]
     Indication: BREAST CANCER METASTATIC
     Dosage: 43 MG, INTRAVENOUS
     Route: 042
     Dates: start: 20061030, end: 20061030

REACTIONS (3)
  - HYPERTENSIVE CRISIS [None]
  - LEFT VENTRICULAR FAILURE [None]
  - PULMONARY OEDEMA [None]
